FAERS Safety Report 18840963 (Version 2)
Quarter: 2021Q1

REPORT INFORMATION
  Report Type: Other
  Country: CA (occurrence: CA)
  Receive Date: 20210204
  Receipt Date: 20210218
  Transmission Date: 20210419
  Serious: Yes (Other)
  Sender: FDA-Public Use
  Company Number: CA-CELLTRION INC.-2021CA001118

PATIENT

DRUGS (15)
  1. RITUXIMAB (UNKNOWN) [Suspect]
     Active Substance: RITUXIMAB
     Indication: IDIOPATHIC PULMONARY FIBROSIS
     Dosage: 1000.0 MILLIGRAM
     Route: 041
  2. MYCOPHENOLATE MOFETIL. [Suspect]
     Active Substance: MYCOPHENOLATE MOFETIL
     Indication: IDIOPATHIC PULMONARY FIBROSIS
     Dosage: 1500.0 MILLIGRAM, 2 EVERY 1 DAYS
     Route: 048
  3. BUDESONIDE;FORMOTEROL FUMARATE [Concomitant]
     Active Substance: BUDESONIDE\FORMOTEROL FUMARATE
  4. ROSUVASTATIN. [Concomitant]
     Active Substance: ROSUVASTATIN
     Dosage: 10.0 MILLIGRAM, 1 EVERY 1 DAYS
     Route: 048
  5. SULFATRIM [Concomitant]
     Active Substance: SULFAMETHOXAZOLE\TRIMETHOPRIM
     Dosage: 3 EVERY 1 DAYS
     Route: 048
  6. AVAMYS [Concomitant]
     Active Substance: FLUTICASONE FUROATE
     Dosage: 55.0 MILLIGRAM, 1 EVERY 1 DAYS
     Route: 045
  7. BENADRYL [Concomitant]
     Active Substance: DIPHENHYDRAMINE HYDROCHLORIDE
     Dosage: 50 MG
     Route: 048
  8. METFORMIN [Concomitant]
     Active Substance: METFORMIN HYDROCHLORIDE
     Dosage: 1000.0 MILLIGRAM, 2 EVERY 1 DAYS
     Route: 048
  9. EURO D [Concomitant]
     Dosage: 400.0 INTERNATIONAL UNIT, 2 EVERY 1 DAYS
     Route: 048
  10. PREDNISONE. [Concomitant]
     Active Substance: PREDNISONE
     Dosage: 15.0 MILLIGRAM, 1 EVERY 1 DAYS
     Route: 048
  11. MYCOPHENOLATE MOFETIL. [Suspect]
     Active Substance: MYCOPHENOLATE MOFETIL
     Dosage: 1000.0 MILLIGRAM, 2 EVERY 1 DAYS
     Route: 048
  12. ALENDRONATE SODIUM. [Concomitant]
     Active Substance: ALENDRONATE SODIUM
     Dosage: 70.0 MILLIGRAM, 1 EVERY 1 WEEKS
     Route: 065
  13. CALCIUM [Concomitant]
     Active Substance: CALCIUM
     Dosage: 500.0 MILLIGRAM, 2 EVERY 1 DAYS
     Route: 048
  14. GLICLAZIDE [Concomitant]
     Active Substance: GLICLAZIDE
     Dosage: 60.0 MILLIGRAM, 1 EVERY 1 DAYS
     Route: 048
  15. SAXAGLIPTIN HYDROCHLORIDE. [Concomitant]
     Active Substance: SAXAGLIPTIN HYDROCHLORIDE
     Dosage: 2.5 MILLIGRAM, 1 EVERY 1 DAYS
     Route: 048

REACTIONS (6)
  - Heart rate increased [Recovered/Resolved]
  - Fatigue [Recovered/Resolved]
  - Off label use [Unknown]
  - Oxygen saturation decreased [Recovered/Resolved]
  - Respiratory rate increased [Recovered/Resolved]
  - Infusion related reaction [Recovered/Resolved]
